FAERS Safety Report 4424262-X (Version None)
Quarter: 2004Q3

REPORT INFORMATION
  Report Type: 
  Country: None (occurrence: None)
  Receive Date: 20040715
  Receipt Date: 20040513
  Transmission Date: 20050211
  Serious: Yes (Hospitalization)
  Sender: FDA-Public Use
  Company Number: 2004213240US

PATIENT
  Sex: Male

DRUGS (2)
  1. CELEBREX [Suspect]
     Dosage: 400 MG, QD,; 200 MG,
     Dates: end: 20040512
  2. COUMADIN [Suspect]
     Dosage: 5 MG, QD,

REACTIONS (1)
  - HAEMORRHAGE [None]
